FAERS Safety Report 25304242 (Version 1)
Quarter: 2025Q2

REPORT INFORMATION
  Report Type: Spontaneous
  Country: US (occurrence: None)
  Receive Date: 20250513
  Receipt Date: 20250513
  Transmission Date: 20250717
  Serious: Yes (Hospitalization)
  Sender: ENCUBE ETHICALS
  Company Number: US-Encube-001813

PATIENT
  Age: 48 Year
  Sex: Male

DRUGS (2)
  1. TACROLIMUS [Suspect]
     Active Substance: TACROLIMUS
     Indication: Prophylaxis against transplant rejection
  2. TACROLIMUS [Suspect]
     Active Substance: TACROLIMUS
     Indication: Prophylaxis against transplant rejection

REACTIONS (4)
  - Pancreatitis acute [Recovering/Resolving]
  - Portal vein thrombosis [Recovering/Resolving]
  - Mesenteric vein thrombosis [Recovering/Resolving]
  - Off label use [Unknown]
